FAERS Safety Report 19370518 (Version 1)
Quarter: 2021Q2

REPORT INFORMATION
  Report Type: Spontaneous
  Country: US (occurrence: US)
  Receive Date: 20210603
  Receipt Date: 20210603
  Transmission Date: 20210717
  Serious: Yes (Other)
  Sender: FDA-Public Use
  Company Number: US-GLAXOSMITHKLINE-US2021GSK119840

PATIENT
  Sex: Female

DRUGS (6)
  1. ZANTAC [Suspect]
     Active Substance: RANITIDINE HYDROCHLORIDE
     Indication: OROPHARYNGEAL PAIN
     Dosage: UNK UNK, QD
     Route: 065
     Dates: start: 200701, end: 201812
  2. RANITIDINE. [Suspect]
     Active Substance: RANITIDINE
     Indication: OROPHARYNGEAL PAIN
     Dosage: UNK, QD
     Route: 065
     Dates: start: 200701, end: 201812
  3. RANITIDINE. [Suspect]
     Active Substance: RANITIDINE
     Indication: OROPHARYNGEAL PAIN
     Dosage: UNK, QD
     Route: 065
     Dates: start: 200701, end: 201812
  4. ZANTAC [Suspect]
     Active Substance: RANITIDINE HYDROCHLORIDE
     Indication: OROPHARYNGEAL PAIN
     Dosage: UNK UNK, QD
     Route: 065
     Dates: start: 200701, end: 201812
  5. RANITIDINE CAPSULE [Suspect]
     Active Substance: RANITIDINE
     Indication: OROPHARYNGEAL PAIN
     Dosage: UNK UNK, QD
     Route: 065
     Dates: start: 200701, end: 201812
  6. RANITIDINE. [Suspect]
     Active Substance: RANITIDINE
     Indication: OROPHARYNGEAL PAIN
     Dosage: UNK UNK, QD
     Route: 065
     Dates: start: 200701, end: 201812

REACTIONS (1)
  - Breast cancer [Unknown]
